FAERS Safety Report 7565784-2 (Version None)
Quarter: 2011Q2

REPORT INFORMATION
  Report Type: 
  Country: None (occurrence: None)
  Receive Date: 20110616
  Receipt Date: 20110603
  Transmission Date: 20111010
  Serious: Yes (Hospitalization, Other)
  Sender: FDA-Public Use
  Company Number: 2010SP031284

PATIENT
  Age: 32 Year
  Sex: Female
  Weight: 79.3795 kg

DRUGS (3)
  1. LUPRON [Concomitant]
  2. NUVARING [Suspect]
     Indication: ANALGESIC THERAPY
     Dosage: ; VAG
     Route: 067
     Dates: start: 20080528, end: 20080601
  3. NUVARING [Suspect]
     Indication: CONTRACEPTION
     Dosage: ; VAG
     Route: 067
     Dates: start: 20080528, end: 20080601

REACTIONS (71)
  - ANTINUCLEAR ANTIBODY POSITIVE [None]
  - HAEMORRHAGE [None]
  - CHEST PAIN [None]
  - PHLEBITIS [None]
  - DYSPNOEA [None]
  - PLATELET COUNT INCREASED [None]
  - LIVER FUNCTION TEST ABNORMAL [None]
  - CYANOSIS [None]
  - HYPERLIPIDAEMIA [None]
  - SNORING [None]
  - FIBROMYALGIA [None]
  - ISCHAEMIC STROKE [None]
  - PNEUMONIA [None]
  - MIGRAINE [None]
  - HYPOAESTHESIA [None]
  - HAEMOPTYSIS [None]
  - COMPLEX REGIONAL PAIN SYNDROME [None]
  - FATIGUE [None]
  - BACK PAIN [None]
  - DRUG HYPERSENSITIVITY [None]
  - PULMONARY EMBOLISM [None]
  - PULMONARY INFARCTION [None]
  - ANAEMIA [None]
  - HEADACHE [None]
  - NEUROPATHY PERIPHERAL [None]
  - ARTHRALGIA [None]
  - INTERNATIONAL NORMALISED RATIO INCREASED [None]
  - COAGULOPATHY [None]
  - HEAD INJURY [None]
  - PLEURISY [None]
  - HYPERCOAGULATION [None]
  - PELVIC PAIN [None]
  - CHRONIC OBSTRUCTIVE PULMONARY DISEASE [None]
  - SYSTEMIC LUPUS ERYTHEMATOSUS [None]
  - EPISTAXIS [None]
  - ANXIETY [None]
  - BONE MARROW DISORDER [None]
  - GASTROOESOPHAGEAL REFLUX DISEASE [None]
  - PRODUCTIVE COUGH [None]
  - POST PROCEDURAL CONSTIPATION [None]
  - SINUS TACHYCARDIA [None]
  - SOMNOLENCE [None]
  - EXERCISE TOLERANCE DECREASED [None]
  - RAYNAUD'S PHENOMENON [None]
  - MUSCULOSKELETAL CHEST PAIN [None]
  - DEPRESSED LEVEL OF CONSCIOUSNESS [None]
  - HYPERTENSION [None]
  - SCAR [None]
  - ANGINA PECTORIS [None]
  - RESPIRATORY FAILURE [None]
  - ADJUSTMENT DISORDER [None]
  - NAUSEA [None]
  - DEEP VEIN THROMBOSIS [None]
  - OVARIAN CYST [None]
  - HYPOXIA [None]
  - NEUROLOGICAL SYMPTOM [None]
  - STRESS [None]
  - DEPRESSION [None]
  - OEDEMA PERIPHERAL [None]
  - RASH [None]
  - DIZZINESS [None]
  - ADHESION [None]
  - THROMBOSIS [None]
  - DELIRIUM [None]
  - MUSCLE SPASMS [None]
  - PARAESTHESIA [None]
  - CONVULSION [None]
  - TRANSIENT ISCHAEMIC ATTACK [None]
  - MUSCULOSKELETAL STIFFNESS [None]
  - ABDOMINAL PAIN [None]
  - BRONCHITIS [None]
